FAERS Safety Report 4291016-7 (Version None)
Quarter: 2004Q1

REPORT INFORMATION
  Report Type: 
  Country: None (occurrence: None)
  Receive Date: 20040211
  Receipt Date: 20031028
  Transmission Date: 20041129
  Serious: No
  Sender: FDA-Public Use
  Company Number: US-GLAXOSMITHKLINE-A0431932A

PATIENT
  Sex: Male

DRUGS (5)
  1. PAXIL [Suspect]
     Indication: DEPRESSION
     Dosage: 40MG PER DAY
     Route: 048
  2. ESKALITH [Concomitant]
  3. SYNTHROID [Concomitant]
  4. PROPRANOLOL [Concomitant]
  5. COUMADIN [Concomitant]

REACTIONS (2)
  - DYSKINESIA [None]
  - TREMOR [None]
